FAERS Safety Report 4695680-X (Version None)
Quarter: 2005Q2

REPORT INFORMATION
  Report Type: 
  Country: None (occurrence: None)
  Receive Date: 20050616
  Receipt Date: 20050616
  Transmission Date: 20051028
  Serious: Yes (Disabling)
  Sender: FDA-Public Use
  Company Number: None

PATIENT
  Age: 34 Year
  Sex: Female
  Weight: 72.5755 kg

DRUGS (2)
  1. ZICAM MATRIXX [Suspect]
     Indication: INFLUENZA
     Dosage: 2 PUMPS ONCE NASAL
     Route: 045
  2. ZICAM MATRIXX [Suspect]
     Indication: NASOPHARYNGITIS
     Dosage: 2 PUMPS ONCE NASAL
     Route: 045

REACTIONS (8)
  - AGEUSIA [None]
  - ANOSMIA [None]
  - BURNING SENSATION [None]
  - DEPRESSION [None]
  - EMOTIONAL DISTRESS [None]
  - HEAD INJURY [None]
  - PAIN [None]
  - SNEEZING [None]
